FAERS Safety Report 9836075 (Version 1)
Quarter: 2014Q1

REPORT INFORMATION
  Report Type: Report from Study
  Country: GB (occurrence: GB)
  Receive Date: 20140122
  Receipt Date: 20140122
  Transmission Date: 20141002
  Serious: Yes (Death)
  Sender: FDA-Public Use
  Company Number: GB-AMGEN-GBRCT2014004368

PATIENT
  Age: 86 Year
  Sex: Male
  Weight: 116.6 kg

DRUGS (9)
  1. ETANERCEPT [Suspect]
     Indication: PRODUCT USED FOR UNKNOWN INDICATION
     Dosage: 50 MG, WEEKLY
     Route: 065
     Dates: start: 20110317, end: 20111114
  2. METFORMIN [Concomitant]
     Dosage: UNK
     Dates: start: 20110317
  3. OMEPRAZOLE [Concomitant]
     Dosage: UNK
     Dates: start: 20111005
  4. GLICLAZIDE [Concomitant]
     Dosage: UNK
     Dates: start: 20100709
  5. SALBUTAMOL [Concomitant]
     Dosage: UNK
     Dates: start: 20100709
  6. CO-CODAMOL [Concomitant]
     Dosage: UNK
     Dates: start: 20120701
  7. LORATADINE [Concomitant]
     Dosage: UNK
     Dates: start: 20120701
  8. PARACETAMOL [Concomitant]
     Dosage: UNK
     Dates: start: 20050101
  9. IBUPROFEN [Concomitant]
     Dosage: UNK
     Dates: start: 20050101

REACTIONS (3)
  - Pulmonary embolism [Fatal]
  - Lung neoplasm malignant [Fatal]
  - Asbestosis [Fatal]
